FAERS Safety Report 6222589-2 (Version None)
Quarter: 2009Q2

REPORT INFORMATION
  Report Type: 
  Country: None (occurrence: None)
  Receive Date: 20090609
  Receipt Date: 20090609
  Transmission Date: 20091009
  Serious: Yes (Congenital Anomaly)
  Sender: FDA-Public Use
  Company Number: None

PATIENT
  Age: 25 Year
  Sex: Female
  Weight: 70.7611 kg

DRUGS (1)
  1. YAZ [Suspect]
     Indication: CONTRACEPTION
     Dosage: 1 PISS DAILY PO
     Route: 048
     Dates: start: 20070101, end: 20071215

REACTIONS (1)
  - DRUG EXPOSURE BEFORE PREGNANCY [None]
